FAERS Safety Report 24184919 (Version 1)
Quarter: 2024Q3

REPORT INFORMATION
  Report Type: Spontaneous
  Country: SE (occurrence: SE)
  Receive Date: 20240807
  Receipt Date: 20240807
  Transmission Date: 20241017
  Serious: Yes (Hospitalization)
  Sender: DAIICHI
  Company Number: None

PATIENT
  Age: 74 Year
  Sex: Male

DRUGS (1)
  1. EDOXABAN TOSYLATE [Suspect]
     Active Substance: EDOXABAN TOSYLATE
     Indication: Product used for unknown indication
     Dosage: UNK
     Route: 065

REACTIONS (5)
  - Mental fatigue [Unknown]
  - Campylobacter infection [Unknown]
  - Hyponatraemia [Unknown]
  - Fall [Unknown]
  - Traumatic intracranial haemorrhage [Unknown]

NARRATIVE: CASE EVENT DATE: 20240601
